FAERS Safety Report 8594934-4 (Version None)
Quarter: 2012Q2

REPORT INFORMATION
  Report Type: 
  Country: None (occurrence: None)
  Receive Date: 20120423
  Receipt Date: 20100527
  Transmission Date: 20120825
  Serious: Yes (Other)
  Sender: FDA-Public Use
  Company Number: PHHY2010US34986

PATIENT
  Sex: Male
  Weight: 74.7 kg

DRUGS (2)
  1. EXJADE [Suspect]
     Indication: BLOOD IRON ABNORMAL
     Dosage: 1500 MG, DAILY, ORAL : ORAL
     Route: 048
     Dates: start: 20080601
  2. EXJADE [Suspect]
     Indication: BLOOD IRON ABNORMAL
     Dosage: 1500 MG, DAILY, ORAL : ORAL
     Route: 048
     Dates: start: 20090828

REACTIONS (1)
  - RENAL FAILURE [None]
